FAERS Safety Report 6945474-7 (Version None)
Quarter: 2010Q3

REPORT INFORMATION
  Report Type: 
  Country: None (occurrence: None)
  Receive Date: 20100827
  Receipt Date: 20100819
  Transmission Date: 20110219
  Serious: Yes (Hospitalization)
  Sender: FDA-Public Use
  Company Number: GXKR2010AT09337

PATIENT
  Age: 81 Year
  Sex: Male
  Weight: 68 kg

DRUGS (4)
  1. SEDACORON (NGX) [Suspect]
     Indication: ATRIAL FIBRILLATION
     Dosage: 200 MG, 5 PER DAY (2 - 1 - 2)
     Route: 048
     Dates: start: 20100713, end: 20100715
  2. APREDNISLON [Concomitant]
     Indication: POLYMYALGIA RHEUMATICA
     Dosage: 0.25 DF, QD, 1/4 DF-0-0
     Route: 048
  3. CONCOR [Concomitant]
     Indication: TACHYCARDIA
     Dosage: 5 MG, QD, 1-0-0
     Route: 048
     Dates: start: 20100713
  4. PANTOPRAZOLE [Concomitant]
     Dosage: 20 MG, QD
     Route: 048
     Dates: start: 20100712

REACTIONS (1)
  - ARTHRITIS [None]
